FAERS Safety Report 4707000-2 (Version None)
Quarter: 2005Q3

REPORT INFORMATION
  Report Type: 
  Country: None (occurrence: None)
  Receive Date: 20050705
  Receipt Date: 20050705
  Transmission Date: 20060218
  Serious: Yes (Hospitalization)
  Sender: FDA-Public Use
  Company Number: None

PATIENT
  Age: 49 Year
  Sex: Female
  Weight: 77.4 kg

DRUGS (6)
  1. TOPOTECAN 3.5MG/M2 WEEKLY X3; REPEAT Q28DAYS [Suspect]
     Indication: OVARIAN CANCER
     Dosage: 3.5MG/M2 WEEKLY X 3 IV
     Route: 042
     Dates: start: 20040610, end: 20050624
  2. TAXOTERE [Suspect]
     Dosage: 30MG/M2 WEEKLY X 3 IV
     Route: 042
     Dates: start: 20050610, end: 20050624
  3. LISINOPRIL [Concomitant]
  4. AMITRIPTYLINE HCL [Concomitant]
  5. SSRI [Concomitant]
  6. AMBIEN [Concomitant]

REACTIONS (1)
  - CHEST PAIN [None]
